FAERS Safety Report 11832098 (Version 2)
Quarter: 2015Q4

REPORT INFORMATION
  Report Type: Spontaneous
  Country: JP (occurrence: JP)
  Receive Date: 20151214
  Receipt Date: 20151223
  Transmission Date: 20160305
  Serious: Yes (Death)
  Sender: FDA-Public Use
  Company Number: PHJP2015JP022379

PATIENT
  Age: 59 Year
  Sex: Female

DRUGS (1)
  1. REVOLADE TAB [Suspect]
     Active Substance: ELTROMBOPAG
     Indication: IMMUNE THROMBOCYTOPENIC PURPURA
     Dosage: 12.5 MG, QD
     Route: 048
     Dates: start: 20140822, end: 20140905

REACTIONS (5)
  - Malignant neoplasm progression [Fatal]
  - Shock haemorrhagic [Fatal]
  - Rash [Recovering/Resolving]
  - Pulmonary haemorrhage [Fatal]
  - Urinary bladder haemorrhage [Fatal]

NARRATIVE: CASE EVENT DATE: 20140904
